FAERS Safety Report 24712462 (Version 1)
Quarter: 2024Q4

REPORT INFORMATION
  Report Type: Spontaneous
  Country: US (occurrence: None)
  Receive Date: 20241209
  Receipt Date: 20241209
  Transmission Date: 20250115
  Serious: No
  Sender: Public
  Company Number: None

PATIENT
  Age: 66 Year
  Sex: Female

DRUGS (3)
  1. POMALYST [Suspect]
     Active Substance: POMALIDOMIDE
     Indication: Plasma cell myeloma
     Dosage: 3MG QD ORAL
     Route: 048
     Dates: start: 20241014, end: 20241111
  2. ISATUXIMAB [Suspect]
     Active Substance: ISATUXIMAB
  3. DEXAMETHASONE [Suspect]
     Active Substance: DEXAMETHASONE

REACTIONS (3)
  - Anaemia [None]
  - Drug ineffective [None]
  - Therapy cessation [None]

NARRATIVE: CASE EVENT DATE: 20241111
